FAERS Safety Report 19230701 (Version 1)
Quarter: 2021Q2

REPORT INFORMATION
  Report Type: Spontaneous
  Country: US (occurrence: US)
  Receive Date: 20210507
  Receipt Date: 20210507
  Transmission Date: 20210717
  Serious: Yes (Other)
  Sender: FDA-Public Use
  Company Number: None

PATIENT
  Age: 37 Year
  Sex: Female
  Weight: 62.1 kg

DRUGS (5)
  1. DEXILANT [Concomitant]
     Active Substance: DEXLANSOPRAZOLE
  2. PREDNISONE. [Concomitant]
     Active Substance: PREDNISONE
  3. LIALDA [Concomitant]
     Active Substance: MESALAMINE
  4. XULANE [Suspect]
     Active Substance: ETHINYL ESTRADIOL\NORELGESTROMIN
     Indication: CONTRACEPTION
     Dosage: ?          QUANTITY:3 PATCH(ES);OTHER FREQUENCY:ONCE WEEKLY;?
     Route: 062
     Dates: start: 20200427, end: 20210404
  5. CANASA SUPPOSITORIES [Concomitant]

REACTIONS (5)
  - Rash [None]
  - Pain [None]
  - Application site pruritus [None]
  - Inflammation [None]
  - Skin discolouration [None]

NARRATIVE: CASE EVENT DATE: 20210506
